FAERS Safety Report 18708325 (Version 1)
Quarter: 2021Q1

REPORT INFORMATION
  Report Type: Spontaneous
  Country: US (occurrence: US)
  Receive Date: 20210106
  Receipt Date: 20210106
  Transmission Date: 20210419
  Serious: No
  Sender: FDA-Public Use
  Company Number: US-ABBVIE-20K-163-3269782-00

PATIENT
  Sex: Male

DRUGS (15)
  1. PREDNISONE. [Suspect]
     Active Substance: PREDNISONE
     Indication: PRODUCT USED FOR UNKNOWN INDICATION
     Dosage: 20 MG/ DAY 10 MG TABLET 5 TABLETS BY MOUTH IN MORNING 7 DAY, THEN 4 TABLET FOR 14 DAYS,
     Route: 065
     Dates: start: 20191223
  2. FOLIC ACID. [Concomitant]
     Active Substance: FOLIC ACID
     Indication: PRODUCT USED FOR UNKNOWN INDICATION
     Dosage: 1 MG TABLET, 2 TABLET BY MOUTH ONCE DAILY
     Route: 048
  3. RITUXAN [Suspect]
     Active Substance: RITUXIMAB
     Route: 065
     Dates: start: 20200206
  4. GLUCOSAMINE CHONDROITIN [Concomitant]
     Active Substance: CHONDROITIN SULFATE (BOVINE)\GLUCOSAMINE HYDROCHLORIDE
     Indication: PRODUCT USED FOR UNKNOWN INDICATION
     Dosage: 2 BY MOUTH ONCE DAILY
     Route: 048
  5. LORATADINE. [Concomitant]
     Active Substance: LORATADINE
     Indication: PRODUCT USED FOR UNKNOWN INDICATION
     Dosage: 10 MG TABLET, 1 TABLET BY MOUTH ONCE DAILY
     Route: 048
  6. VENETOCLAX. [Suspect]
     Active Substance: VENETOCLAX
     Indication: CHRONIC LYMPHOCYTIC LEUKAEMIA
     Route: 048
     Dates: start: 20200101, end: 2020
  7. ASPIRIN. [Concomitant]
     Active Substance: ASPIRIN
     Indication: PRODUCT USED FOR UNKNOWN INDICATION
     Dosage: 81 MG TABLET DELAYED RELEASE ONCE DAILY
  8. CYCLOPHOSPHAMIDE. [Concomitant]
     Active Substance: CYCLOPHOSPHAMIDE
     Indication: HAEMOLYTIC ANAEMIA
     Dosage: 500 MG/32 DAYS 1 TO 5
  9. EPINEPHRINE. [Concomitant]
     Active Substance: EPINEPHRINE
     Indication: HYPERSENSITIVITY
     Dosage: INJECTION 0.3MG/03. ML AUTO INJECTOR, 1 SYRINGE INTRAMUSCULAR AS DIRECTED
     Route: 030
  10. OMEPRAZOLE. [Concomitant]
     Active Substance: OMEPRAZOLE
     Indication: PRODUCT USED FOR UNKNOWN INDICATION
     Dosage: 20MG DELAYED RELEASED
     Route: 048
  11. RITUXAN [Suspect]
     Active Substance: RITUXIMAB
     Dosage: DAY 1 CYCLE 1
     Route: 065
     Dates: start: 20191226
  12. DEXAMETHASONE. [Concomitant]
     Active Substance: DEXAMETHASONE
     Indication: PRODUCT USED FOR UNKNOWN INDICATION
     Dosage: FOR TOTAL OF 7 DAYS 20 MG DAY1, 12 MG DAYS2 TO 7, CYCLE 2 DAY1 TODAY, 19?OCT?2016
  13. RITUXAN [Suspect]
     Active Substance: RITUXIMAB
     Indication: HAEMOLYTIC ANAEMIA
     Dosage: DAY 1 CYCLE 1
     Route: 065
     Dates: start: 20161006
  14. RITUXAN [Suspect]
     Active Substance: RITUXIMAB
     Route: 065
     Dates: start: 20170111
  15. AMLODIPINE [Concomitant]
     Active Substance: AMLODIPINE BESYLATE
     Indication: HYPERTENSION
     Dosage: 1TABLET BY MOUTH ONCE DAILY
     Route: 048

REACTIONS (1)
  - Insomnia [Unknown]
